FAERS Safety Report 4285461-3 (Version None)
Quarter: 2004Q1

REPORT INFORMATION
  Report Type: 
  Country: None (occurrence: None)
  Receive Date: 20040202
  Receipt Date: 20040121
  Transmission Date: 20041129
  Serious: Yes (Other)
  Sender: FDA-Public Use
  Company Number: US-JNJFOC-20040104177

PATIENT
  Age: 45 Year
  Sex: Female

DRUGS (9)
  1. INFLIXIMAB (INFLIXIMAB, RECOMBINANT) LYOPHILIZED POWDER [Suspect]
     Indication: RHEUMATOID ARTHRITIS
     Dosage: INTRAVENOUS
     Route: 042
     Dates: start: 20020131, end: 20030324
  2. HYDROXYCHLOROQUINE SULFATE [Concomitant]
  3. DICLOFENAC SODIUM [Concomitant]
  4. HUMIRA (ALL OTHER THERAPEUTIC PRODUCTS) [Concomitant]
  5. ACCUPRIL [Concomitant]
  6. TOPROL (METOPROLOL SUCCINATE) [Concomitant]
  7. HYDROCHLOROTHIAZIDE [Concomitant]
  8. ACIPHEX [Concomitant]
  9. DITROPAN [Concomitant]

REACTIONS (3)
  - APNOEA [None]
  - FLUSHING [None]
  - INFUSION RELATED REACTION [None]
